FAERS Safety Report 17354416 (Version 3)
Quarter: 2022Q2

REPORT INFORMATION
  Report Type: Spontaneous
  Country: US (occurrence: US)
  Receive Date: 20200131
  Receipt Date: 20220519
  Transmission Date: 20220720
  Serious: Yes (Hospitalization, Other)
  Sender: FDA-Public Use
  Company Number: US-AMNEAL PHARMACEUTICALS-2020-AMRX-00245

PATIENT
  Age: 83 Year
  Sex: Female

DRUGS (2)
  1. RYTARY [Suspect]
     Active Substance: CARBIDOPA\LEVODOPA
     Indication: Parkinson^s disease
     Dosage: 3 CAPSULES, 3 /DAY AT 8AM-2PM-8PM
     Route: 048
  2. RYTARY [Suspect]
     Active Substance: CARBIDOPA\LEVODOPA
     Dosage: 1 CAPSULES, 3 /DAY
     Route: 048

REACTIONS (5)
  - Hip fracture [Recovering/Resolving]
  - Eyelid ptosis [Unknown]
  - Fall [Recovering/Resolving]
  - Colectomy [Unknown]
  - Balance disorder [Unknown]

NARRATIVE: CASE EVENT DATE: 20210129
